FAERS Safety Report 19698212 (Version 1)
Quarter: 2021Q3

REPORT INFORMATION
  Report Type: Spontaneous
  Country: FR (occurrence: FR)
  Receive Date: 20210813
  Receipt Date: 20210813
  Transmission Date: 20211014
  Serious: Yes (Hospitalization, Other)
  Sender: FDA-Public Use
  Company Number: FR-TEVA-2021-FR-1940840

PATIENT
  Age: 40 Year
  Sex: Male

DRUGS (5)
  1. COCAINE [Suspect]
     Active Substance: COCAINE
     Dosage: UNSPECIFIED , THERAPY START DATE AND END DATE : NASK
     Route: 042
  2. METHADONE [Suspect]
     Active Substance: METHADONE HYDROCHLORIDE
     Dosage: UNSPECIFIED
     Route: 048
  3. VALIUM [Suspect]
     Active Substance: DIAZEPAM
     Dosage: UNSPECIFIED , THERAPY START DATE AND END DATE : NASK
     Route: 048
  4. ZOLPIDEM [Suspect]
     Active Substance: ZOLPIDEM TARTRATE
     Dosage: UNSPECIFIED
     Route: 048
  5. COCAINE [Suspect]
     Active Substance: COCAINE
     Dosage: UNSPECIFIED , THERAPY START DATE AND END DATE : NASK
     Route: 045

REACTIONS (3)
  - Drug abuse [Not Recovered/Not Resolved]
  - Intentional product misuse [Not Recovered/Not Resolved]
  - Drug withdrawal maintenance therapy [Recovering/Resolving]
